FAERS Safety Report 4706594-0 (Version None)
Quarter: 2005Q3

REPORT INFORMATION
  Report Type: 
  Country: None (occurrence: None)
  Receive Date: 20050705
  Receipt Date: 20050418
  Transmission Date: 20060218
  Serious: Yes (Hospitalization)
  Sender: FDA-Public Use
  Company Number: 2005AP02412

PATIENT
  Age: 20041 Day
  Sex: Female
  Weight: 48 kg

DRUGS (16)
  1. DIPRIVAN [Suspect]
     Indication: GENERAL ANAESTHESIA
     Route: 042
     Dates: start: 20050412, end: 20050412
  2. SEVOFRANE [Suspect]
     Indication: GENERAL ANAESTHESIA
     Route: 055
     Dates: start: 20050412, end: 20050412
  3. MUSCULAX [Suspect]
     Dates: start: 20050412, end: 20050412
  4. FENTANEST [Concomitant]
     Dates: start: 20050412, end: 20050412
  5. LASIX [Concomitant]
     Dates: start: 20050412, end: 20050412
  6. CEFAMEZIN ALPHA [Concomitant]
     Route: 041
     Dates: start: 20050412, end: 20050413
  7. GAMOFA [Concomitant]
     Indication: GASTRIC ULCER
     Route: 048
     Dates: start: 20050121, end: 20050411
  8. SELBEX [Concomitant]
     Indication: GASTRIC ULCER
     Route: 048
     Dates: start: 20050121, end: 20050411
  9. ATROPINE SULFATE [Concomitant]
     Dates: start: 20050412, end: 20050412
  10. VAGOSTIGMIN [Concomitant]
     Dates: start: 20050412, end: 20050412
  11. EFFORTIL [Concomitant]
     Dates: start: 20050412, end: 20050412
  12. COFMESIN [Concomitant]
     Dates: start: 20050412, end: 20050413
  13. MARCAINE [Concomitant]
     Indication: EPIDURAL ANAESTHESIA
     Route: 008
     Dates: start: 20050412, end: 20050413
  14. XYLOCAINE [Concomitant]
     Dates: start: 20050412, end: 20050412
  15. LEXOTAN [Concomitant]
     Indication: ANXIETY DISORDER
  16. STAMACLIT [Concomitant]
     Indication: ANXIETY DISORDER
     Route: 048

REACTIONS (4)
  - HEPATIC FUNCTION ABNORMAL [None]
  - HEPATOCELLULAR DAMAGE [None]
  - LIVER DISORDER [None]
  - MALAISE [None]
